FAERS Safety Report 10141987 (Version 2)
Quarter: 2014Q2

REPORT INFORMATION
  Report Type: Report from Study
  Country: US (occurrence: US)
  Receive Date: 20140429
  Receipt Date: 20140506
  Transmission Date: 20141212
  Serious: Yes (Death, Hospitalization)
  Sender: FDA-Public Use
  Company Number: US-CELGENEUS-163-C5013-14045133

PATIENT
  Age: 67 Year
  Sex: Male
  Weight: 75.55 kg

DRUGS (74)
  1. CC-5013 [Suspect]
     Indication: ACUTE MYELOID LEUKAEMIA
     Dosage: 10 MILLIGRAM
     Route: 065
     Dates: start: 20140408, end: 20140427
  2. MITOXANTRONE [Suspect]
     Indication: ACUTE MYELOID LEUKAEMIA
     Route: 041
     Dates: start: 20140411
  3. ETOPOSIDE [Suspect]
     Indication: ACUTE MYELOID LEUKAEMIA
     Route: 041
  4. CYTARABINE [Suspect]
     Indication: ACUTE MYELOID LEUKAEMIA
     Route: 041
     Dates: start: 20140411
  5. FILGRASTIM [Concomitant]
     Indication: COLONY STIMULATING FACTOR THERAPY
     Dosage: 300 MICROGRAM
     Route: 041
     Dates: start: 20140416
  6. THIAMINE HCL [Concomitant]
     Indication: VITAMIN B1 DEFICIENCY
     Dosage: 100 MILLIGRAM
     Route: 048
     Dates: start: 20140411
  7. MULTIVITAMINS WITH MINERALS [Concomitant]
     Indication: PRODUCT USED FOR UNKNOWN INDICATION
     Route: 048
     Dates: start: 20130411
  8. TRYPSIN [Concomitant]
     Indication: PRODUCT USED FOR UNKNOWN INDICATION
     Route: 048
     Dates: start: 20130417
  9. MAGNESIUM SULFATE [Concomitant]
     Indication: PRODUCT USED FOR UNKNOWN INDICATION
     Route: 065
     Dates: start: 20130408
  10. MAGNESIUM SULFATE [Concomitant]
     Route: 065
     Dates: start: 20130416
  11. BIOTENE [Concomitant]
     Indication: PRODUCT USED FOR UNKNOWN INDICATION
     Dosage: 90 MILLILITER
     Route: 065
     Dates: start: 20140418
  12. ZOLPIDEM TARTRATE [Concomitant]
     Indication: INSOMNIA
     Dosage: 5 MILLIGRAM
     Route: 048
     Dates: start: 20140408
  13. TYLENOL [Concomitant]
     Indication: HEADACHE
     Dosage: 3900 MILLIGRAM
     Route: 048
     Dates: start: 20140408
  14. TYLENOL [Concomitant]
     Indication: BODY TEMPERATURE
  15. OXYCODONE [Concomitant]
     Indication: PAIN
     Dosage: 5-10MG
     Route: 048
     Dates: start: 20140411
  16. NYSTATIN [Concomitant]
     Indication: PRODUCT USED FOR UNKNOWN INDICATION
     Dosage: 20 MILLILITER
     Route: 048
     Dates: start: 20140418
  17. LEVOFLOXACIN [Concomitant]
     Indication: PRODUCT USED FOR UNKNOWN INDICATION
     Dosage: 750 MILLIGRAM
     Route: 041
     Dates: start: 20140418
  18. CEFEPIME [Concomitant]
     Indication: PRODUCT USED FOR UNKNOWN INDICATION
     Dosage: 6 GRAM
     Route: 041
     Dates: start: 20140408
  19. CEFEPIME [Concomitant]
     Dosage: 4 GRAM
     Route: 041
     Dates: start: 20140414
  20. VANCOMYCIN HCL [Concomitant]
     Indication: PRODUCT USED FOR UNKNOWN INDICATION
     Dosage: 2000 MILLIGRAM
     Route: 041
     Dates: start: 20140408
  21. FOLATE [Concomitant]
     Indication: PRODUCT USED FOR UNKNOWN INDICATION
     Route: 048
     Dates: start: 20140411
  22. FOLATE [Concomitant]
     Dosage: 1 MILLIGRAM
     Route: 041
     Dates: start: 20140427
  23. BACTRIM DS [Concomitant]
     Indication: PRODUCT USED FOR UNKNOWN INDICATION
     Dosage: 8 TABLET
     Route: 048
     Dates: start: 20140411
  24. HYDROXYUREA [Concomitant]
     Indication: PRODUCT USED FOR UNKNOWN INDICATION
     Dosage: 6000 MILLIGRAM
     Route: 048
     Dates: start: 20140408
  25. POTASSIUM CHLORIDE [Concomitant]
     Indication: PRODUCT USED FOR UNKNOWN INDICATION
     Route: 041
     Dates: start: 20140415
  26. POTASSIUM CHLORIDE [Concomitant]
     Route: 041
     Dates: start: 20140419
  27. POTASSIUM CHLORIDE [Concomitant]
     Route: 041
     Dates: start: 20140413
  28. POTASSIUM CHLORIDE [Concomitant]
     Route: 041
     Dates: start: 20140413
  29. POTASSIUM CHLORIDE [Concomitant]
     Route: 041
     Dates: start: 20140411
  30. POTASSIUM CHLORIDE [Concomitant]
     Route: 041
     Dates: start: 20140410
  31. ONDANSETRON HCL [Concomitant]
     Indication: NAUSEA
     Dosage: 16 MILLIGRAM
     Route: 041
     Dates: start: 20140413
  32. ONDANSETRON HCL [Concomitant]
     Indication: VOMITING
     Route: 041
     Dates: start: 20140419
  33. ALLOPURINOL [Concomitant]
     Indication: PRODUCT USED FOR UNKNOWN INDICATION
     Dosage: 300 MILLIGRAM
     Route: 048
     Dates: start: 20140408
  34. MIRALAX [Concomitant]
     Indication: PRODUCT USED FOR UNKNOWN INDICATION
     Dosage: 17 GRAM
     Route: 048
     Dates: start: 20140412
  35. COLACE [Concomitant]
     Indication: PRODUCT USED FOR UNKNOWN INDICATION
     Dosage: 200 MILLIGRAM
     Route: 048
     Dates: start: 20140408
  36. SENNA [Concomitant]
     Indication: PRODUCT USED FOR UNKNOWN INDICATION
     Dosage: 17.2 MILLIGRAM
     Route: 048
     Dates: start: 20140408
  37. SEVELAMER [Concomitant]
     Indication: PRODUCT USED FOR UNKNOWN INDICATION
     Dosage: 4800 MILLIGRAM
     Route: 048
     Dates: start: 20140408
  38. PREDNISONE [Concomitant]
     Indication: PRODUCT USED FOR UNKNOWN INDICATION
     Dosage: 80 MILLIGRAM
     Route: 048
     Dates: start: 20140410
  39. LACTULOSE [Concomitant]
     Indication: CONSTIPATION
     Dosage: 15-30MG
     Route: 065
     Dates: start: 20140408
  40. DEXAMETHASONE [Concomitant]
     Indication: PRODUCT USED FOR UNKNOWN INDICATION
     Dosage: 0.1%
     Route: 065
     Dates: start: 20140411
  41. LASIX [Concomitant]
     Indication: PRODUCT USED FOR UNKNOWN INDICATION
     Route: 041
     Dates: start: 20140415
  42. LASIX [Concomitant]
     Route: 041
     Dates: start: 20140408
  43. CALCIUM GLUCONATE [Concomitant]
     Indication: PRODUCT USED FOR UNKNOWN INDICATION
     Route: 041
     Dates: start: 20140409
  44. LIDOCAINE HCL [Concomitant]
     Indication: PRODUCT USED FOR UNKNOWN INDICATION
     Dosage: 1%
     Route: 041
     Dates: start: 20140409
  45. ZOFRAN [Concomitant]
     Indication: NAUSEA
     Dosage: 12 MILLIGRAM
     Route: 041
     Dates: start: 20140409
  46. ZOFRAN [Concomitant]
     Dosage: 24 MILLIGRAM
     Route: 041
     Dates: start: 20140417
  47. DILAUDID [Concomitant]
     Indication: PAIN
     Dosage: 0.4-0.8MG
     Route: 041
     Dates: start: 20140408
  48. DILAUDID [Concomitant]
     Dosage: 0.2-0.4MG
     Route: 041
     Dates: start: 20140426
  49. NORMAL SALINE [Concomitant]
     Indication: PRODUCT USED FOR UNKNOWN INDICATION
     Dosage: 100-500ML/HR
     Route: 041
     Dates: start: 20140408
  50. PLATELET [Concomitant]
     Indication: PRODUCT USED FOR UNKNOWN INDICATION
     Route: 065
     Dates: start: 20140408
  51. CRYOPRECIPITATE [Concomitant]
     Indication: PRODUCT USED FOR UNKNOWN INDICATION
     Route: 065
     Dates: start: 20140408
  52. LEVOPHED [Concomitant]
     Indication: PRODUCT USED FOR UNKNOWN INDICATION
     Dosage: 0-20MCG/MIN
     Route: 041
     Dates: start: 20140425
  53. PHENYLEPHRINE HCL [Concomitant]
     Indication: PRODUCT USED FOR UNKNOWN INDICATION
     Dosage: 0-200MCG/MIN
     Route: 041
     Dates: start: 20140427
  54. NIMBEX [Concomitant]
     Indication: PRODUCT USED FOR UNKNOWN INDICATION
     Dosage: 0-3MCG/MIN
     Route: 041
     Dates: start: 20140426
  55. FENTANYL CITRATE [Concomitant]
     Indication: PRODUCT USED FOR UNKNOWN INDICATION
     Dosage: 0-200MCG/MIN
     Route: 041
     Dates: start: 20140426
  56. PROPOFOL [Concomitant]
     Indication: PRODUCT USED FOR UNKNOWN INDICATION
     Dosage: 0-5MG/KG/HR
     Route: 041
     Dates: start: 20140426
  57. VASOPRESSIN [Concomitant]
     Indication: PRODUCT USED FOR UNKNOWN INDICATION
     Dosage: 0.04UNITS/MIN
     Route: 041
     Dates: start: 20140426
  58. AMBISOME [Concomitant]
     Indication: PRODUCT USED FOR UNKNOWN INDICATION
     Dosage: 225 MILLIGRAM
     Route: 041
     Dates: start: 20140426
  59. IMIPENEM/CILASTATIN [Concomitant]
     Indication: PRODUCT USED FOR UNKNOWN INDICATION
     Dosage: 600 MILLIGRAM
     Route: 041
     Dates: start: 20140425
  60. MICONAZOLE NITRATE [Concomitant]
     Indication: PRODUCT USED FOR UNKNOWN INDICATION
     Dosage: 4 PERCENT
     Route: 065
     Dates: start: 20140424
  61. ACYCLOVIR [Concomitant]
     Indication: PRODUCT USED FOR UNKNOWN INDICATION
     Dosage: 400 MILLIGRAM
     Route: 041
     Dates: start: 20140422
  62. LACRI-LUBE [Concomitant]
     Indication: PRODUCT USED FOR UNKNOWN INDICATION
     Route: 061
     Dates: start: 20130427
  63. LACRI-LUBE [Concomitant]
     Route: 065
     Dates: start: 20130416
  64. TEARS NATURALE [Concomitant]
     Indication: PRODUCT USED FOR UNKNOWN INDICATION
     Dosage: 6 DROPS
     Route: 065
     Dates: start: 20130426
  65. TEARS NATURALE [Concomitant]
     Route: 065
     Dates: start: 20130416
  66. CHLORHEXIDINE [Concomitant]
     Indication: PRODUCT USED FOR UNKNOWN INDICATION
     Dosage: 30 MILLILITER
     Route: 065
     Dates: start: 20140426
  67. FAMOTIDINE [Concomitant]
     Indication: PRODUCT USED FOR UNKNOWN INDICATION
     Dosage: 40 MILLIGRAM
     Route: 041
     Dates: start: 20140426
  68. DUONEB [Concomitant]
     Indication: PRODUCT USED FOR UNKNOWN INDICATION
     Dosage: 3/0.5MG
     Route: 065
     Dates: start: 20140426
  69. KEPPRA [Concomitant]
     Indication: PRODUCT USED FOR UNKNOWN INDICATION
     Dosage: 1000 MILLIGRAM
     Route: 041
     Dates: start: 20140422
  70. CAPHOSOL [Concomitant]
     Indication: PRODUCT USED FOR UNKNOWN INDICATION
     Dosage: 120 MILLILITER
     Route: 065
     Dates: start: 20140422
  71. SALINE NASAL DROPS [Concomitant]
     Indication: PRODUCT USED FOR UNKNOWN INDICATION
     Dosage: 2 SPRAY
     Route: 065
     Dates: start: 20140418
  72. LACTATED RINGERS [Concomitant]
     Indication: PRODUCT USED FOR UNKNOWN INDICATION
     Dosage: 1,000ML BOLUS
     Route: 065
     Dates: start: 20140427
  73. TROPICAMIDE [Concomitant]
     Indication: PRODUCT USED FOR UNKNOWN INDICATION
     Dosage: 0.05%
     Route: 065
     Dates: start: 20140427
  74. HALODOL [Concomitant]
     Indication: PRODUCT USED FOR UNKNOWN INDICATION
     Route: 041
     Dates: start: 20140425

REACTIONS (7)
  - Sepsis [Fatal]
  - Fungaemia [Fatal]
  - Confusional state [Not Recovered/Not Resolved]
  - Hypernatraemia [Not Recovered/Not Resolved]
  - Haemorrhage intracranial [Not Recovered/Not Resolved]
  - Thrombocytopenia [Not Recovered/Not Resolved]
  - Blood creatinine increased [Not Recovered/Not Resolved]
